FAERS Safety Report 9697482 (Version 1)
Quarter: 2013Q4

REPORT INFORMATION
  Report Type: Spontaneous
  Country: US (occurrence: None)
  Receive Date: 20131119
  Receipt Date: 20131119
  Transmission Date: 20140711
  Serious: No
  Sender: FDA-Public Use
  Company Number: None

PATIENT
  Sex: Male
  Weight: 90.72 kg

DRUGS (14)
  1. ZOLOFT [Suspect]
     Indication: DEPRESSION
     Dosage: 100MG, 1 PILL PER DAY
     Route: 048
  2. ITRACONAZOLE [Concomitant]
  3. ZOLOFT [Concomitant]
  4. ACETAMINOPHEN [Concomitant]
  5. ATORVASTATIN [Concomitant]
  6. METOPROLOL [Concomitant]
  7. ASPIRIN [Concomitant]
  8. MAGNESIUM [Concomitant]
  9. POTASSIUM [Concomitant]
  10. FISH OIL [Concomitant]
  11. OMEGA-3 [Concomitant]
  12. GLUCOSAMINE [Concomitant]
  13. CHONDROITIN [Concomitant]
  14. DIPHENHYDRAMINE [Concomitant]

REACTIONS (1)
  - Tinnitus [None]
